FAERS Safety Report 9498991 (Version 1)
Quarter: 2013Q3

REPORT INFORMATION
  Report Type: Spontaneous
  Country: US (occurrence: US)
  Receive Date: 20130904
  Receipt Date: 20130904
  Transmission Date: 20140515
  Serious: Yes (Other)
  Sender: FDA-Public Use
  Company Number: US-DYAX CORP.-2013DX000165

PATIENT
  Age: 21 Year
  Sex: Female
  Weight: 77.18 kg

DRUGS (3)
  1. KALBITOR [Suspect]
     Indication: HEREDITARY ANGIOEDEMA
     Route: 058
     Dates: start: 20130821, end: 20130821
  2. KALBITOR [Suspect]
     Route: 058
     Dates: start: 2012
  3. FIRAZYR [Concomitant]
     Indication: HEREDITARY ANGIOEDEMA
     Route: 058

REACTIONS (3)
  - Swelling face [Recovered/Resolved]
  - Generalised erythema [Recovered/Resolved]
  - Heart rate increased [Recovered/Resolved]
